FAERS Safety Report 8051938-8 (Version None)
Quarter: 2012Q1

REPORT INFORMATION
  Report Type: 
  Country: None (occurrence: None)
  Receive Date: 20120118
  Receipt Date: 20120112
  Transmission Date: 20120608
  Serious: Yes (Death, Other)
  Sender: FDA-Public Use
  Company Number: JP-JNJFOC-20101102120

PATIENT
  Sex: Female
  Weight: 46 kg

DRUGS (12)
  1. DOXORUBICIN HCL [Suspect]
     Indication: OVARIAN CANCER RECURRENT
     Route: 042
     Dates: start: 20100602, end: 20100602
  2. DOXORUBICIN HCL [Suspect]
     Route: 042
     Dates: start: 20100421, end: 20100421
  3. DOXORUBICIN HCL [Suspect]
     Route: 042
     Dates: start: 20100210, end: 20100210
  4. PYDOXAL [Concomitant]
     Indication: PROPHYLAXIS
     Route: 048
     Dates: end: 20100615
  5. SODIUM BICARBONATE [Concomitant]
     Indication: PROPHYLAXIS
     Route: 049
     Dates: end: 20100608
  6. BETAMETHASONE [Concomitant]
     Route: 061
     Dates: start: 20100323, end: 20100329
  7. DOXORUBICIN HCL [Suspect]
     Route: 042
     Dates: start: 20100319, end: 20100319
  8. MUCOSTA [Concomitant]
     Route: 048
  9. DOXORUBICIN HCL [Suspect]
     Route: 042
     Dates: start: 20100113, end: 20100113
  10. RAMELTEON [Concomitant]
     Indication: PROPHYLAXIS
     Route: 048
     Dates: end: 20100606
  11. MAGNESIUM SULFATE [Concomitant]
     Route: 048
  12. ZYRTEC [Concomitant]
     Route: 048
     Dates: start: 20100326, end: 20100329

REACTIONS (5)
  - INJECTION SITE ERYTHEMA [None]
  - OVARIAN CANCER RECURRENT [None]
  - NEOPLASM PROGRESSION [None]
  - NASOPHARYNGITIS [None]
  - SKIN EXFOLIATION [None]
